FAERS Safety Report 13702760 (Version 1)
Quarter: 2017Q2

REPORT INFORMATION
  Report Type: Spontaneous
  Country: US (occurrence: US)
  Receive Date: 20170629
  Receipt Date: 20170629
  Transmission Date: 20170830
  Serious: Yes (Disabling)
  Sender: FDA-Public Use
  Company Number: US-JNJFOC-20170610901

PATIENT
  Sex: Female

DRUGS (2)
  1. HALDOL DECANOATE [Suspect]
     Active Substance: HALOPERIDOL DECANOATE
     Indication: BIPOLAR DISORDER
     Dosage: BEGAN DRUG WHILE HOSPITALIZED BETWEEN 6-7 YEARS AGO
     Route: 030
  2. HALDOL DECANOATE [Suspect]
     Active Substance: HALOPERIDOL DECANOATE
     Indication: SCHIZOPHRENIA
     Dosage: BEGAN DRUG WHILE HOSPITALIZED BETWEEN 6-7 YEARS AGO
     Route: 030

REACTIONS (4)
  - Tremor [Unknown]
  - Drug ineffective [Unknown]
  - Restlessness [Unknown]
  - Dystonia [Not Recovered/Not Resolved]
